FAERS Safety Report 23409242 (Version 3)
Quarter: 2024Q1

REPORT INFORMATION
  Report Type: Spontaneous
  Country: CL (occurrence: CL)
  Receive Date: 20240117
  Receipt Date: 20240216
  Transmission Date: 20240410
  Serious: No
  Sender: FDA-Public Use
  Company Number: CL-PFIZER INC-PV202300207545

PATIENT
  Age: 14 Year
  Sex: Male

DRUGS (1)
  1. GENOTROPIN [Suspect]
     Active Substance: SOMATROPIN
     Dosage: UNK
     Dates: start: 20230302

REACTIONS (3)
  - Injection site pain [Unknown]
  - Device mechanical issue [Unknown]
  - Needle issue [Unknown]

NARRATIVE: CASE EVENT DATE: 20231221
